FAERS Safety Report 4367293-0 (Version None)
Quarter: 2004Q2

REPORT INFORMATION
  Report Type: 
  Country: None (occurrence: None)
  Receive Date: 20040524
  Receipt Date: 20040511
  Transmission Date: 20050107
  Serious: Yes (Death, Hospitalization)
  Sender: FDA-Public Use
  Company Number: 02100-JPN-04-0057

PATIENT
  Age: 80 Year
  Sex: Female

DRUGS (8)
  1. CILOSTAZOL [Suspect]
     Indication: ATHEROSCLEROSIS
     Dosage: 200 MG
     Route: 048
     Dates: start: 20031211, end: 20040304
  2. CILOSTAZOL [Suspect]
     Indication: INFARCTION
     Dosage: 200 MG
     Route: 048
     Dates: start: 20031211, end: 20040304
  3. CILOSTAZOL [Suspect]
     Indication: THROMBOSIS
     Dosage: 200 MG
     Route: 048
     Dates: start: 20031211, end: 20040304
  4. ZOLPIDEM TARTRATE [Concomitant]
  5. ASPIRIN [Concomitant]
  6. CHINESE HERBAL MEDICINE [Concomitant]
  7. ACETAMINOPHEN [Concomitant]
  8. AMLODIPINE BESYLATE [Concomitant]

REACTIONS (9)
  - ACTIVATED PARTIAL THROMBOPLASTIN TIME PROLONGED [None]
  - BLEEDING TIME PROLONGED [None]
  - BLOOD PRESSURE INCREASED [None]
  - CEREBRAL HAEMORRHAGE [None]
  - COMA [None]
  - FALL [None]
  - PARALYSIS [None]
  - PLATELET COUNT DECREASED [None]
  - PROTHROMBIN TIME PROLONGED [None]
